FAERS Safety Report 5206562-9 (Version None)
Quarter: 2007Q1

REPORT INFORMATION
  Report Type: 
  Country: None (occurrence: None)
  Receive Date: 20070111
  Receipt Date: 20061231
  Transmission Date: 20070707
  Serious: Yes (Hospitalization)
  Sender: FDA-Public Use
  Company Number: IL-ELI_LILLY_AND_COMPANY-IL200701001930

PATIENT
  Age: 42 Year
  Sex: Male
  Weight: 70 kg

DRUGS (5)
  1. CYMBALTA [Suspect]
     Indication: ANXIETY
     Dates: start: 20061201
  2. ASA ASPIRINE [Concomitant]
     Indication: CORONARY ARTERY DISEASE
     Dates: start: 20050101
  3. FOLIC ACID [Concomitant]
     Indication: PROPHYLAXIS
     Dates: start: 20020101
  4. LIPITOR [Concomitant]
     Indication: HYPERLIPIDAEMIA
     Dates: start: 20020101
  5. NORMITEN [Concomitant]
     Indication: HYPERTENSION
     Dates: start: 20050101

REACTIONS (2)
  - HEMIPARESIS [None]
  - SPEECH DISORDER [None]
